FAERS Safety Report 18945799 (Version 1)
Quarter: 2021Q1

REPORT INFORMATION
  Report Type: Spontaneous
  Country: GB (occurrence: GB)
  Receive Date: 20210226
  Receipt Date: 20210226
  Transmission Date: 20210420
  Serious: Yes (Hospitalization)
  Sender: FDA-Public Use
  Company Number: GB-MYLANLABS-2021M1011498

PATIENT
  Age: 77 Year
  Sex: Female
  Weight: 86 kg

DRUGS (8)
  1. SEVOFLURANE. [Concomitant]
     Active Substance: SEVOFLURANE
     Indication: MAINTENANCE OF ANAESTHESIA
     Route: 065
  2. SUGAMMADEX [Suspect]
     Active Substance: SUGAMMADEX
     Indication: NEUROMUSCULAR BLOCKADE REVERSAL
     Dosage: 400 MILLIGRAM
     Route: 065
  3. ROCURONIUM [Suspect]
     Active Substance: ROCURONIUM BROMIDE
     Dosage: 50 MILLIGRAM,  SECOND CANNULA WAS PLACED IN THE RIGHT ARM AND 50 MG ..THROUGH ..
  4. PROPOFOL. [Concomitant]
     Active Substance: PROPOFOL
     Indication: INDUCTION OF ANAESTHESIA
     Dosage: 150 MILLIGRAM
     Route: 065
  5. ROCURONIUM [Suspect]
     Active Substance: ROCURONIUM BROMIDE
     Indication: NEUROMUSCULAR BLOCKING THERAPY
     Dosage: 100 MILLIGRAM, SCHEDULED TO BE ADMINISTERED THROUGH LEFT ANTECUBITAL FOSSA CANNULA..
     Route: 058
  6. ROCURONIUM [Suspect]
     Active Substance: ROCURONIUM BROMIDE
     Dosage: 100 MILLIGRAM, SCHEDULED TO BE ADMINISTERED THROUGH LEFT ANTECUBITAL ..
     Route: 058
  7. SUGAMMADEX [Suspect]
     Active Substance: SUGAMMADEX
     Dosage: UNK DOSE INCREASED
     Route: 065
  8. FENTANYL. [Concomitant]
     Active Substance: FENTANYL
     Indication: INDUCTION OF ANAESTHESIA
     Dosage: 100 MICROGRAM
     Route: 065

REACTIONS (3)
  - Recurrence of neuromuscular blockade [Recovered/Resolved]
  - Administration site extravasation [Recovered/Resolved]
  - Incorrect route of product administration [Recovered/Resolved]
